FAERS Safety Report 5820267-2 (Version None)
Quarter: 2008Q3

REPORT INFORMATION
  Report Type: 
  Country: None (occurrence: None)
  Receive Date: 20080724
  Receipt Date: 20071105
  Transmission Date: 20090109
  Serious: No
  Sender: FDA-Public Use
  Company Number: A0623732A

PATIENT
  Age: 68 Year
  Sex: Female

DRUGS (4)
  1. AVANDIA [Suspect]
     Dosage: 4MG PER DAY
     Route: 048
     Dates: start: 20051201
  2. DEXEDRINE [Suspect]
     Indication: MAJOR DEPRESSION
     Route: 048
  3. ARMOUR THYROID [Concomitant]
  4. TYLENOL [Concomitant]

REACTIONS (6)
  - BLOOD CHOLESTEROL INCREASED [None]
  - FATIGUE [None]
  - HAEMATOCHEZIA [None]
  - HEART RATE INCREASED [None]
  - NASOPHARYNGITIS [None]
  - SOMNOLENCE [None]
